FAERS Safety Report 12695821 (Version 2)
Quarter: 2016Q4

REPORT INFORMATION
  Report Type: Spontaneous
  Country: JP (occurrence: JP)
  Receive Date: 20160829
  Receipt Date: 20161010
  Transmission Date: 20170207
  Serious: Yes (Hospitalization)
  Sender: FDA-Public Use
  Company Number: JP-PFIZER INC-2016406475

PATIENT
  Age: 79 Year
  Sex: Male
  Weight: 36 kg

DRUGS (18)
  1. CAMPTO [Suspect]
     Active Substance: IRINOTECAN
     Dosage: 150 MG (114.9 MG/M2), CYCLIC
     Route: 041
     Dates: start: 20151216, end: 20151216
  2. CAMPTO [Suspect]
     Active Substance: IRINOTECAN
     Dosage: 150 MG (114.9 MG/M2), CYCLIC
     Route: 041
     Dates: start: 20160210, end: 20160210
  3. CAMPTO [Suspect]
     Active Substance: IRINOTECAN
     Dosage: 150 MG (114.9 MG/M2), CYCLIC
     Route: 041
     Dates: start: 20160511, end: 20160511
  4. CAMPTO [Suspect]
     Active Substance: IRINOTECAN
     Dosage: 150 MG (114.9 MG/M2), CYCLIC
     Route: 041
     Dates: start: 20160720, end: 20160720
  5. PRODIF [Concomitant]
     Active Substance: FOSFLUCONAZOLE
     Dosage: UNK
     Dates: start: 20160801, end: 20160812
  6. GRAN [Concomitant]
     Active Substance: FILGRASTIM
     Dosage: UNK
     Dates: start: 20160728, end: 20160805
  7. CAMPTO [Suspect]
     Active Substance: IRINOTECAN
     Dosage: 150 MG (114.9 MG/M2), CYCLIC
     Route: 041
     Dates: start: 20160406, end: 20160406
  8. 5-FU /00098801/ [Concomitant]
     Active Substance: FLUOROURACIL
     Indication: COLON CANCER
     Dosage: 1600 MG (1225.1 MG/M2), CYCLIC (D1-2, AS CONTINUOUS INFUSION)
     Route: 041
     Dates: start: 20151118, end: 20160720
  9. DECADRON [Concomitant]
     Active Substance: DEXAMETHASONE
     Dosage: UNK
     Dates: start: 20151118, end: 20160720
  10. LEVOFOLINATE CALCIUM [Concomitant]
     Active Substance: LEVOLEUCOVORIN CALCIUM
     Indication: COLON CANCER
     Dosage: 125 MG (95.7 MG/M2), CYCLIC
     Dates: start: 20151118, end: 20160720
  11. KYTRIL [Concomitant]
     Active Substance: GRANISETRON HYDROCHLORIDE
     Dosage: UNK
     Dates: start: 20151118, end: 20160720
  12. GLUFAST [Concomitant]
     Active Substance: MITIGLINIDE
     Dosage: UNK
  13. CAMPTO [Suspect]
     Active Substance: IRINOTECAN
     Dosage: 150 MG (114.9 MG/M2), CYCLIC
     Route: 041
     Dates: start: 20160113, end: 20160113
  14. CAMPTO [Suspect]
     Active Substance: IRINOTECAN
     Dosage: 150 MG (114.9 MG/M2), CYCLIC
     Route: 041
     Dates: start: 20160309, end: 20160309
  15. CAMPTO [Suspect]
     Active Substance: IRINOTECAN
     Dosage: 150 MG (114.9 MG/M2), CYCLIC
     Route: 041
     Dates: start: 20160615, end: 20160615
  16. BYDUREON [Concomitant]
     Active Substance: EXENATIDE
     Dosage: UNK
  17. CAMPTO [Suspect]
     Active Substance: IRINOTECAN
     Indication: COLON CANCER
     Dosage: 150 MG (114.9 MG/M2), CYCLIC
     Route: 041
     Dates: start: 20151118, end: 20151118
  18. FINIBAX [Concomitant]
     Active Substance: DORIPENEM MONOHYDRATE
     Dosage: UNK
     Dates: start: 20160725, end: 20160809

REACTIONS (4)
  - Pyrexia [Unknown]
  - Leukopenia [Recovered/Resolved]
  - Malaise [Recovered/Resolved]
  - Diarrhoea [Recovering/Resolving]

NARRATIVE: CASE EVENT DATE: 20160723
